FAERS Safety Report 20549714 (Version 12)
Quarter: 2025Q3

REPORT INFORMATION
  Report Type: Report from Study
  Country: KR (occurrence: KR)
  Receive Date: 20220304
  Receipt Date: 20250908
  Transmission Date: 20251021
  Serious: Yes (Hospitalization)
  Sender: ABBVIE
  Company Number: KR-ABBVIE-21K-090-3958578-00

PATIENT
  Age: 45 Year
  Sex: Female
  Weight: 59 kg

DRUGS (23)
  1. SKYRIZI [Suspect]
     Active Substance: RISANKIZUMAB-RZAA
     Indication: Psoriasis
     Route: 058
     Dates: start: 20210210, end: 20210210
  2. SKYRIZI [Suspect]
     Active Substance: RISANKIZUMAB-RZAA
     Route: 058
     Dates: start: 20210318, end: 20210318
  3. SKYRIZI [Suspect]
     Active Substance: RISANKIZUMAB-RZAA
     Route: 058
     Dates: start: 20210610, end: 20210610
  4. SKYRIZI [Suspect]
     Active Substance: RISANKIZUMAB-RZAA
     Route: 058
     Dates: start: 20210909, end: 20210909
  5. SKYRIZI [Suspect]
     Active Substance: RISANKIZUMAB-RZAA
     Route: 058
     Dates: start: 20211202, end: 20211202
  6. SKYRIZI [Suspect]
     Active Substance: RISANKIZUMAB-RZAA
     Route: 058
     Dates: start: 20220303, end: 20220303
  7. OROCIN [Concomitant]
     Indication: Antibiotic prophylaxis
     Route: 048
     Dates: start: 20220225
  8. Enstilum [Concomitant]
     Indication: Psoriasis
     Route: 061
     Dates: start: 20200615, end: 20210320
  9. OMEX [Concomitant]
     Indication: Psoriasis
     Route: 061
     Dates: start: 20201208, end: 20210320
  10. BETAMETHASONE DIPROPIONATE\CALCIPOTRIENE HYDRATE [Concomitant]
     Active Substance: BETAMETHASONE DIPROPIONATE\CALCIPOTRIENE HYDRATE
     Indication: Psoriasis
     Route: 061
     Dates: start: 20201103, end: 20210320
  11. DESOXIMETASONE [Concomitant]
     Active Substance: DESOXIMETASONE
     Indication: Psoriasis
     Route: 061
     Dates: start: 2018
  12. VITAMIN C [Concomitant]
     Active Substance: ASCORBIC ACID
     Indication: Nutritional supplementation
     Route: 048
     Dates: start: 20210129, end: 20211130
  13. VASCAM [Concomitant]
     Indication: Surgery
     Dosage: 3MG/3ML
     Route: 042
     Dates: start: 20220225, end: 20220225
  14. XYZAL [Concomitant]
     Active Substance: LEVOCETIRIZINE DIHYDROCHLORIDE
     Indication: Psoriasis
     Route: 048
     Dates: start: 20201103, end: 20210320
  15. Fentanyl citrate daewon [Concomitant]
     Indication: Product used for unknown indication
     Route: 042
     Dates: start: 20220225, end: 20220225
  16. ITOMED [Concomitant]
     Indication: Prophylaxis
     Route: 048
     Dates: start: 20210427, end: 20210503
  17. ITOMED [Concomitant]
     Indication: Prophylaxis
     Route: 048
  18. LOXOPRIN [Concomitant]
     Indication: Antibiotic prophylaxis
     Route: 048
     Dates: start: 20220225
  19. REBAT [Concomitant]
     Indication: Prophylaxis
     Route: 048
     Dates: start: 20210427, end: 20210503
  20. MOSAPRI [Concomitant]
     Indication: Gastrointestinal disorder prophylaxis
     Dosage: VIVOZON MOSAPRI DETAB 5 MG
     Dates: start: 20210821, end: 20210823
  21. HUMOSA [Concomitant]
     Indication: Antibiotic prophylaxis
     Route: 048
     Dates: start: 20220225
  22. METHOTREXATE [Concomitant]
     Active Substance: METHOTREXATE
     Indication: Psoriasis
     Dates: start: 20201103, end: 20210209
  23. CYCLOSPORINE [Concomitant]
     Active Substance: CYCLOSPORINE
     Indication: Psoriasis
     Dates: start: 20200616, end: 20201102

REACTIONS (3)
  - Uterine leiomyoma [Recovered/Resolved]
  - Ligament sprain [Recovered/Resolved]
  - Dermatitis contact [Recovered/Resolved]

NARRATIVE: CASE EVENT DATE: 20210101
